FAERS Safety Report 6211765-0 (Version None)
Quarter: 2009Q2

REPORT INFORMATION
  Report Type: 
  Country: None (occurrence: None)
  Receive Date: 20090528
  Receipt Date: 20090518
  Transmission Date: 20091009
  Serious: Yes (Death)
  Sender: FDA-Public Use
  Company Number: 2008AL012539

PATIENT
  Age: 68 Year
  Sex: Male

DRUGS (11)
  1. DIGOXIN [Suspect]
     Dosage: 0.25MG, DAILY, PO
     Route: 048
  2. LEVOTHYROXINE [Concomitant]
  3. QUINAPRIL [Concomitant]
  4. KLOR-CON [Concomitant]
  5. LIPITOR [Concomitant]
  6. ISOSORBIDE [Concomitant]
  7. METORPOLOL [Concomitant]
  8. WARFARIN [Concomitant]
  9. GLIPIZIDE [Concomitant]
  10. METFORMIN HYDROCHLORIDE [Concomitant]
  11. FUROSEMIDE [Concomitant]

REACTIONS (15)
  - ACUTE PULMONARY OEDEMA [None]
  - AGITATION [None]
  - ANHEDONIA [None]
  - ANOREXIA [None]
  - ARRHYTHMIA [None]
  - ASTHENIA [None]
  - CARDIAC FAILURE [None]
  - CONFUSIONAL STATE [None]
  - ECONOMIC PROBLEM [None]
  - EXPOSURE TO TOXIC AGENT [None]
  - FATIGUE [None]
  - INJURY [None]
  - LEFT VENTRICULAR DYSFUNCTION [None]
  - LOSS OF EMPLOYMENT [None]
  - PAIN [None]
